FAERS Safety Report 8127535-2 (Version None)
Quarter: 2012Q1

REPORT INFORMATION
  Report Type: 
  Country: None (occurrence: None)
  Receive Date: 20120210
  Receipt Date: 20120201
  Transmission Date: 20120608
  Serious: Yes (Other)
  Sender: FDA-Public Use
  Company Number: US-COVIDIEN/TYCO HEALTHCARE/MALLINCKRODT-T201200582

PATIENT
  Age: 48 Year
  Sex: Female

DRUGS (2)
  1. OXYCODONE HCL [Concomitant]
     Indication: PAIN
     Dosage: 5 MG, PRN, UP TO 6 TABLETS PER DAY
     Route: 048
  2. EXALGO [Suspect]
     Indication: PAIN
     Dosage: 16 MG, QD
     Route: 048
     Dates: start: 20110401

REACTIONS (1)
  - POLYCYTHAEMIA [None]
